APPROVED DRUG PRODUCT: TIOTROPIUM BROMIDE
Active Ingredient: TIOTROPIUM BROMIDE
Strength: EQ 0.018MG BASE/INH
Dosage Form/Route: POWDER;INHALATION
Application: A211287 | Product #001 | TE Code: AB
Applicant: LUPIN INC
Approved: Jun 20, 2023 | RLD: No | RS: No | Type: RX